FAERS Safety Report 6591149-6 (Version None)
Quarter: 2010Q1

REPORT INFORMATION
  Report Type: 
  Country: None (occurrence: None)
  Receive Date: 20100219
  Receipt Date: 20090801
  Transmission Date: 20100710
  Serious: No
  Sender: FDA-Public Use
  Company Number: US-BRISTOL-MYERS SQUIBB COMPANY-14729420

PATIENT

DRUGS (1)
  1. KENALOG-10 [Suspect]
     Dosage: 1 DF = 1OMG/ML VIAL 5

REACTIONS (1)
  - DRUG INEFFECTIVE [None]
